FAERS Safety Report 10043915 (Version 2)
Quarter: 2014Q1

REPORT INFORMATION
  Report Type: Spontaneous
  Country: US (occurrence: US)
  Receive Date: 20140328
  Receipt Date: 20140328
  Transmission Date: 20141002
  Serious: No
  Sender: FDA-Public Use
  Company Number: US-MYLANLABS-2013S1004112

PATIENT
  Age: 79 Year
  Sex: Female
  Weight: 53.52 kg

DRUGS (3)
  1. EMSAM (SELEGILINE TRANSDERMAL SYSTEM) [Suspect]
     Indication: DEPRESSION
     Dosage: CHANGES Q24H
     Route: 062
     Dates: start: 2007
  2. NOVOCAINE [Suspect]
     Indication: DENTAL CARE
     Dates: start: 2012, end: 2012
  3. THYROID SUPPLEMENT [Concomitant]
     Indication: HYPOTHYROIDISM

REACTIONS (1)
  - Sinusitis [Recovered/Resolved]
